FAERS Safety Report 13316856 (Version 1)
Quarter: 2017Q1

REPORT INFORMATION
  Report Type: Spontaneous
  Country: US (occurrence: US)
  Receive Date: 20170310
  Receipt Date: 20170310
  Transmission Date: 20170428
  Serious: Yes (Other)
  Sender: FDA-Public Use
  Company Number: US-INVENTIA-000163

PATIENT
  Age: 59 Year
  Sex: Male
  Weight: 102.06 kg

DRUGS (3)
  1. GLYBURIDE. [Concomitant]
     Active Substance: GLYBURIDE
     Indication: TYPE 2 DIABETES MELLITUS
  2. TANZEUM [Concomitant]
     Active Substance: ALBIGLUTIDE
     Indication: TYPE 2 DIABETES MELLITUS
     Dosage: ONCE A WEEK/ INJECTION
     Dates: start: 201610
  3. METFORMIN [Suspect]
     Active Substance: METFORMIN HYDROCHLORIDE
     Indication: TYPE 2 DIABETES MELLITUS
     Dosage: 500 MG ER, 2 TABLETS IN MORNING, AND 2 TABLETS?IN EVENING / ORAL, CURRENT RX IS 675151
     Route: 048
     Dates: start: 20170207

REACTIONS (2)
  - Blood glucose increased [Not Recovered/Not Resolved]
  - Drug ineffective [Unknown]
